FAERS Safety Report 7626577-0 (Version None)
Quarter: 2011Q3

REPORT INFORMATION
  Report Type: 
  Country: None (occurrence: None)
  Receive Date: 20110721
  Receipt Date: 20110711
  Transmission Date: 20111222
  Serious: Yes (Death, Hospitalization)
  Sender: FDA-Public Use
  Company Number: FR-GLAXOSMITHKLINE-B0732019A

PATIENT
  Sex: Male

DRUGS (4)
  1. CASODEX [Suspect]
     Indication: PROSTATE CANCER
     Dosage: 50MG PER DAY
     Route: 048
     Dates: start: 20101201, end: 20110501
  2. AVODART [Suspect]
     Indication: PROSTATE CANCER
     Dosage: .5MG PER DAY
     Route: 048
     Dates: start: 20101201, end: 20110501
  3. ALKA SELTZER [Concomitant]
     Indication: ABDOMINAL PAIN
     Dates: start: 20110501
  4. FIRMAGON [Suspect]
     Indication: PROSTATE CANCER
     Dosage: 80MG MONTHLY
     Route: 058
     Dates: start: 20101201, end: 20110428

REACTIONS (18)
  - CHROMATURIA [None]
  - DUODENAL ULCER PERFORATION [None]
  - COMA [None]
  - CARDIAC ARREST [None]
  - BRAIN OEDEMA [None]
  - MULTI-ORGAN FAILURE [None]
  - HEPATITIS FULMINANT [None]
  - CONVULSION [None]
  - SINUS BRADYCARDIA [None]
  - ACIDOSIS [None]
  - ASTHENIA [None]
  - HAEMATEMESIS [None]
  - ASCITES [None]
  - INFECTIOUS PERITONITIS [None]
  - HEPATIC NECROSIS [None]
  - JAUNDICE [None]
  - INTESTINAL DILATATION [None]
  - PLEURAL EFFUSION [None]
